FAERS Safety Report 23978917 (Version 2)
Quarter: 2024Q3

REPORT INFORMATION
  Report Type: Spontaneous
  Country: US (occurrence: US)
  Receive Date: 20240615
  Receipt Date: 20240709
  Transmission Date: 20241017
  Serious: Yes (Hospitalization)
  Sender: AUROBINDO
  Company Number: US-AUROBINDO-AUR-APL-2024-024586

PATIENT
  Age: 68 Year
  Sex: Male
  Weight: 77 kg

DRUGS (1)
  1. CLOZAPINE [Suspect]
     Active Substance: CLOZAPINE
     Indication: Product used for unknown indication
     Dosage: UNK
     Route: 065

REACTIONS (8)
  - Hospitalisation [Unknown]
  - Neutrophil count decreased [Unknown]
  - Nausea [Unknown]
  - Vomiting [Unknown]
  - Therapy interrupted [Unknown]
  - Drug titration [Unknown]
  - Therapy cessation [Unknown]
  - Diarrhoea [Unknown]
